FAERS Safety Report 4588404-8 (Version None)
Quarter: 2005Q1

REPORT INFORMATION
  Report Type: 
  Country: None (occurrence: None)
  Receive Date: 20050216
  Receipt Date: 20050216
  Transmission Date: 20050727
  Serious: No
  Sender: FDA-Public Use
  Company Number: None

PATIENT
  Sex: Female
  Weight: 63.5036 kg

DRUGS (2)
  1. REMERON [Suspect]
     Indication: ANXIETY
     Dosage: 1X AT DAY
  2. PROZAC [Suspect]
     Indication: DEMENTIA
     Dosage: 1X A DAY

REACTIONS (2)
  - AGITATION [None]
  - DRUG INEFFECTIVE [None]
